FAERS Safety Report 8362180-5 (Version None)
Quarter: 2012Q2

REPORT INFORMATION
  Report Type: 
  Country: None (occurrence: None)
  Receive Date: 20120515
  Receipt Date: 20120502
  Transmission Date: 20120825
  Serious: Yes (Hospitalization)
  Sender: FDA-Public Use
  Company Number: GB-TEVA-337595ISR

PATIENT
  Sex: Male
  Weight: 70 kg

DRUGS (1)
  1. COPAXONE [Suspect]
     Indication: RELAPSING-REMITTING MULTIPLE SCLEROSIS
     Dosage: 20 MILLIGRAM;
     Route: 058

REACTIONS (9)
  - NEURALGIA [None]
  - PALLOR [None]
  - FLUSHING [None]
  - WHITE BLOOD CELL COUNT INCREASED [None]
  - DYSPNOEA [None]
  - PRURITUS [None]
  - HYPOAESTHESIA [None]
  - RASH [None]
  - PARAESTHESIA [None]
